FAERS Safety Report 4890747-5 (Version None)
Quarter: 2006Q1

REPORT INFORMATION
  Report Type: 
  Country: None (occurrence: None)
  Receive Date: 20060123
  Receipt Date: 20060111
  Transmission Date: 20060701
  Serious: Yes (Other)
  Sender: FDA-Public Use
  Company Number: 2005146535

PATIENT
  Age: 57 Year
  Sex: Male

DRUGS (7)
  1. ZOLOFT [Suspect]
     Indication: DEPRESSION
     Dates: start: 20010601
  2. DYAZIDE [Concomitant]
  3. DIOVAN HCT (HYDROCHLOROTHIAZIDER, VALSARTAN) [Concomitant]
  4. ATENOLOL [Concomitant]
  5. PRILOSEC [Concomitant]
  6. SYNTHROID [Concomitant]
  7. LIPITOR (AORVASTATIN) [Concomitant]

REACTIONS (3)
  - DRUG DEPENDENCE [None]
  - DRUG INEFFECTIVE [None]
  - DRUG WITHDRAWAL SYNDROME [None]
